FAERS Safety Report 8466201-0 (Version None)
Quarter: 2012Q2

REPORT INFORMATION
  Report Type: 
  Country: None (occurrence: None)
  Receive Date: 20120626
  Receipt Date: 20120614
  Transmission Date: 20120825
  Serious: Yes (Hospitalization)
  Sender: FDA-Public Use
  Company Number: JP-ELI_LILLY_AND_COMPANY-JP201204002174

PATIENT
  Sex: Female
  Weight: 39 kg

DRUGS (10)
  1. FORTEO [Suspect]
     Dosage: 20 UG, QD
     Route: 058
     Dates: start: 20120222, end: 20120308
  2. LAC-B [Concomitant]
     Dosage: 1 G, TID
     Route: 048
     Dates: start: 20110430
  3. REBAMIPIDE [Concomitant]
     Dosage: 100 MG, TID
     Route: 048
     Dates: start: 20120216
  4. FAMOTIDINE [Concomitant]
     Dosage: 20 MG, QD
     Route: 048
     Dates: start: 20110818
  5. FORTEO [Suspect]
     Dosage: UNK
     Route: 058
     Dates: start: 20120404, end: 20120419
  6. VOLTAREN                                /SCH/ [Concomitant]
     Indication: BACK PAIN
     Dosage: UNK UNK, PRN
     Route: 054
  7. URSO 250 [Concomitant]
     Dosage: 100 MG, TID
     Route: 048
     Dates: start: 20110430
  8. MAGLAX [Concomitant]
     Dosage: 200 MG, TID
     Route: 048
     Dates: start: 20110430
  9. LOXOPROFEN [Concomitant]
     Indication: BACK PAIN
     Dosage: 60 MG, TID
     Route: 048
     Dates: start: 20120216
  10. LASIX [Concomitant]
     Dosage: 20 MG, QD
     Route: 048
     Dates: start: 20110430

REACTIONS (2)
  - GASTRODUODENAL ULCER [None]
  - BACK PAIN [None]
